FAERS Safety Report 6026124-3 (Version None)
Quarter: 2009Q1

REPORT INFORMATION
  Report Type: 
  Country: None (occurrence: None)
  Receive Date: 20090102
  Receipt Date: 20081222
  Transmission Date: 20090719
  Serious: Yes (Death)
  Sender: FDA-Public Use
  Company Number: IE-ROCHE-570146

PATIENT
  Sex: Female
  Weight: 100.5 kg

DRUGS (10)
  1. MIRCERA [Suspect]
     Dosage: DOSAGE: FORTNIGHTLY. RECEIVED 2 DOSES ONLY.
     Route: 058
     Dates: start: 20080430, end: 20080501
  2. METFORMIN HCL [Concomitant]
     Route: 048
  3. ALLOPURINOL [Concomitant]
     Route: 048
  4. BISOPROLOL FUMARATE [Concomitant]
     Route: 048
  5. OMEPRAZOLE [Concomitant]
     Route: 048
  6. 1 CONCOMITANT DRUG [Concomitant]
     Dosage: DRUG NAME: ELANTIN.
     Route: 048
  7. ATORVASTATIN CALCIUM [Concomitant]
     Route: 048
  8. FRUSEMIDE [Concomitant]
     Route: 048
  9. FERROUS GLUCONATE [Concomitant]
  10. 1 CONCOMITANT DRUG [Concomitant]
     Dosage: DRUG NAME: CALUDIN

REACTIONS (2)
  - CARDIAC ARREST [None]
  - FATIGUE [None]
